FAERS Safety Report 12467235 (Version 3)
Quarter: 2019Q3

REPORT INFORMATION
  Report Type: Report from Study
  Country: US (occurrence: US)
  Receive Date: 20160615
  Receipt Date: 20190926
  Transmission Date: 20191004
  Serious: Yes (Other)
  Sender: FDA-Public Use
  Company Number: US-ROCHE-1775352

PATIENT
  Sex: Male

DRUGS (14)
  1. MORPHINE [Concomitant]
     Active Substance: MORPHINE
  2. PREDNISONE. [Concomitant]
     Active Substance: PREDNISONE
     Dosage: DAY BEFORE RITUXAN INFUSION
     Route: 065
  3. DECADRON [Concomitant]
     Active Substance: DEXAMETHASONE
     Dosage: WITH RITUXAN INFUSION
     Route: 065
  4. BENDAMUSTINE [Concomitant]
     Active Substance: BENDAMUSTINE
     Indication: B-CELL LYMPHOMA
     Route: 042
     Dates: start: 201503, end: 201508
  5. GABAPENTIN. [Concomitant]
     Active Substance: GABAPENTIN
  6. NORTRIPTYLINE [Concomitant]
     Active Substance: NORTRIPTYLINE
  7. LEXAPRO [Concomitant]
     Active Substance: ESCITALOPRAM OXALATE
  8. ELITEK [Concomitant]
     Active Substance: RASBURICASE
  9. RITUXAN [Suspect]
     Active Substance: RITUXIMAB
     Indication: PRODUCT USED FOR UNKNOWN INDICATION
     Route: 042
  10. TOPAMAX [Concomitant]
     Active Substance: TOPIRAMATE
  11. TRILEPTAL [Concomitant]
     Active Substance: OXCARBAZEPINE
  12. CYTOXAN [Concomitant]
     Active Substance: CYCLOPHOSPHAMIDE
  13. DEXAMETHASONE. [Concomitant]
     Active Substance: DEXAMETHASONE
  14. GAZYVA [Concomitant]
     Active Substance: OBINUTUZUMAB
     Indication: B-CELL LYMPHOMA
     Dosage: AS NEEDED
     Route: 042

REACTIONS (15)
  - Dizziness [Unknown]
  - Lymphoma [Unknown]
  - Rash [Recovered/Resolved]
  - Confusional state [Not Recovered/Not Resolved]
  - Memory impairment [Not Recovered/Not Resolved]
  - Drug intolerance [Not Recovered/Not Resolved]
  - Vertigo [Unknown]
  - Erythema [Recovered/Resolved]
  - Pruritus [Recovered/Resolved]
  - Arthralgia [Not Recovered/Not Resolved]
  - Migraine [Unknown]
  - Progressive multifocal leukoencephalopathy [Recovered/Resolved]
  - Spinocerebellar ataxia [Not Recovered/Not Resolved]
  - Neuropathy peripheral [Not Recovered/Not Resolved]
  - Headache [Unknown]
